FAERS Safety Report 8436710-9 (Version None)
Quarter: 2012Q2

REPORT INFORMATION
  Report Type: 
  Country: None (occurrence: None)
  Receive Date: 20120614
  Receipt Date: 20120606
  Transmission Date: 20120825
  Serious: Yes (Hospitalization)
  Sender: FDA-Public Use
  Company Number: JP-BRISTOL-MYERS SQUIBB COMPANY-16293086

PATIENT
  Age: 76 Year
  Sex: Female

DRUGS (8)
  1. LANSOPRAZOLE [Concomitant]
  2. LOXONIN [Concomitant]
     Indication: RHEUMATOID ARTHRITIS
  3. SULFASALAZINE [Concomitant]
     Indication: RHEUMATOID ARTHRITIS
  4. ORENCIA [Suspect]
     Indication: RHEUMATOID ARTHRITIS
     Dosage: INFU DTS 27MAY11,10JUN11,8JUL11,5AUG11 STOPPED REST ON 6JAN12
     Route: 041
     Dates: start: 20110513
  5. ALENDRONATE SODIUM [Concomitant]
  6. METHOTREXATE [Suspect]
     Indication: RHEUMATOID ARTHRITIS
     Dates: start: 20101201, end: 20110902
  7. PREDNISOLONE [Concomitant]
     Indication: RHEUMATOID ARTHRITIS
     Route: 048
  8. FERROUS CITRATE [Concomitant]
     Indication: RHEUMATOID ARTHRITIS

REACTIONS (1)
  - INTERSTITIAL LUNG DISEASE [None]
